FAERS Safety Report 8986608 (Version 1)
Quarter: 2012Q4

REPORT INFORMATION
  Report Type: 
  Country: JP (occurrence: JP)
  Receive Date: 20121227
  Receipt Date: 20121227
  Transmission Date: 20130627
  Serious: Yes (Other)
  Sender: FDA-Public Use
  Company Number: JP-009507513-1212JPN010079

PATIENT
  Age: 64 Year
  Sex: Male
  Weight: 72 kg

DRUGS (10)
  1. PEGINTRON [Suspect]
     Indication: CHRONIC HEPATITIS C
     Dosage: 100 Microgram, qw
     Route: 058
     Dates: start: 20120827
  2. REBETOL [Suspect]
     Indication: CHRONIC HEPATITIS C
     Dosage: 800 mg, qd
     Route: 048
     Dates: start: 20120827, end: 20120909
  3. REBETOL [Suspect]
     Dosage: 400 mg, qd
     Route: 048
     Dates: start: 20120910
  4. TELAVIC [Suspect]
     Indication: CHRONIC HEPATITIS C
     Dosage: 2250 mg, qd
     Route: 048
     Dates: start: 20120827, end: 20120909
  5. TELAVIC [Suspect]
     Dosage: 1500mg, qd
     Route: 048
     Dates: start: 20120910, end: 20120923
  6. TELAVIC [Suspect]
     Dosage: 1000mg, qd
     Route: 048
     Dates: start: 20120924, end: 20121111
  7. MAGMITT [Concomitant]
     Indication: CONSTIPATION
     Dosage: 1980 mg, qd
     Route: 048
  8. MAGMITT [Concomitant]
     Dosage: 990 mg, qd
     Route: 048
     Dates: start: 20121029
  9. PURSENNID (SENNOSIDES) [Concomitant]
     Indication: CONSTIPATION
     Dosage: 12 mg per day, prn, formulation:ENM
     Route: 048
  10. GLYCERIN [Concomitant]
     Indication: CONSTIPATION
     Dosage: 60 ml per day, prn, Formulation: ENM
     Route: 054

REACTIONS (1)
  - Orthostatic hypotension [Not Recovered/Not Resolved]
